FAERS Safety Report 24346242 (Version 1)
Quarter: 2024Q3

REPORT INFORMATION
  Report Type: Spontaneous
  Country: US (occurrence: US)
  Receive Date: 20240921
  Receipt Date: 20240921
  Transmission Date: 20241017
  Serious: Yes (Hospitalization)
  Sender: ROCHE
  Company Number: US-MLMSERVICE-20181008-1408714-1

PATIENT
  Age: 44 Year
  Sex: Male

DRUGS (5)
  1. MYCOPHENOLATE MOFETIL [Suspect]
     Active Substance: MYCOPHENOLATE MOFETIL
     Indication: Dermatitis contact
     Dosage: WAS TITRATED UP TO 1500 MG TWICE DAILY
     Route: 065
     Dates: start: 2011, end: 2017
  2. PREDNISONE [Suspect]
     Active Substance: PREDNISONE
     Indication: Dermatitis contact
     Dosage: 40 TO 60 MG DAILY? FREQUENCY TEXT:DAILY
     Route: 065
  3. PREDNISONE [Suspect]
     Active Substance: PREDNISONE
     Route: 065
  4. CLOBETASOL [Concomitant]
     Active Substance: CLOBETASOL
     Route: 061
  5. DUPILUMAB [Concomitant]
     Active Substance: DUPILUMAB

REACTIONS (5)
  - Pneumonia [Recovered/Resolved]
  - Molluscum contagiosum [Recovered/Resolved]
  - Cellulitis [Recovered/Resolved]
  - Oesophageal candidiasis [Recovered/Resolved]
  - Sepsis [Recovered/Resolved]

NARRATIVE: CASE EVENT DATE: 20160101
